FAERS Safety Report 10755297 (Version 4)
Quarter: 2015Q2

REPORT INFORMATION
  Report Type: Spontaneous
  Country: FI (occurrence: FI)
  Receive Date: 20150202
  Receipt Date: 20150430
  Transmission Date: 20150821
  Serious: Yes (Death, Hospitalization, Other)
  Sender: FDA-Public Use
  Company Number: FI-CELGENE-FIN-2015013755

PATIENT
  Age: 58 Year
  Sex: Female

DRUGS (3)
  1. CANDEMOX [Concomitant]
     Indication: PRODUCT USED FOR UNKNOWN INDICATION
     Route: 048
     Dates: start: 20140612, end: 20141221
  2. AZACITIDINE INJECTABLE [Suspect]
     Active Substance: AZACITIDINE
     Indication: CHRONIC MYELOMONOCYTIC LEUKAEMIA
     Route: 058
     Dates: start: 20140720
  3. AZACITIDINE INJECTABLE [Suspect]
     Active Substance: AZACITIDINE
     Route: 058
     Dates: start: 20141210, end: 20141215

REACTIONS (6)
  - Epistaxis [Recovering/Resolving]
  - Fall [Fatal]
  - Traumatic haematoma [Not Recovered/Not Resolved]
  - Subarachnoid haemorrhage [Fatal]
  - Contusion [Unknown]
  - Platelet count decreased [Not Recovered/Not Resolved]

NARRATIVE: CASE EVENT DATE: 2014
